FAERS Safety Report 7986178-1 (Version None)
Quarter: 2011Q4

REPORT INFORMATION
  Report Type: 
  Country: None (occurrence: None)
  Receive Date: 20111216
  Receipt Date: 20111212
  Transmission Date: 20120403
  Serious: Yes (Other)
  Sender: FDA-Public Use
  Company Number: US-GLAXOSMITHKLINE-A0902837A

PATIENT
  Age: 76 Year
  Sex: Male

DRUGS (1)
  1. VOTRIENT [Suspect]
     Indication: RENAL CANCER
     Dosage: 800MG PER DAY
     Route: 048
     Dates: start: 20101116

REACTIONS (7)
  - ABDOMINAL NEOPLASM [None]
  - DIARRHOEA [None]
  - INCREASED TENDENCY TO BRUISE [None]
  - VISUAL IMPAIRMENT [None]
  - DYSGEUSIA [None]
  - TREATMENT FAILURE [None]
  - RHINORRHOEA [None]
